FAERS Safety Report 21961126 (Version 1)
Quarter: 2023Q1

REPORT INFORMATION
  Report Type: Spontaneous
  Country: US (occurrence: US)
  Receive Date: 20230207
  Receipt Date: 20230207
  Transmission Date: 20230418
  Serious: No
  Sender: FDA-Public Use
  Company Number: US-ABBVIE-4297179

PATIENT
  Sex: Female

DRUGS (1)
  1. IMBRUVICA [Suspect]
     Active Substance: IBRUTINIB
     Indication: Product used for unknown indication
     Dosage: 280 MG
     Route: 048
     Dates: start: 20220323

REACTIONS (4)
  - Multiple allergies [Not Recovered/Not Resolved]
  - Pneumonia [Unknown]
  - General symptom [Unknown]
  - Asthma [Not Recovered/Not Resolved]
